FAERS Safety Report 10083569 (Version 1)
Quarter: 2014Q2

REPORT INFORMATION
  Report Type: Spontaneous
  Country: NL (occurrence: NL)
  Receive Date: 20140417
  Receipt Date: 20140417
  Transmission Date: 20141212
  Serious: Yes (Hospitalization)
  Sender: FDA-Public Use
  Company Number: NL-JNJFOC-20140407629

PATIENT
  Age: 43 Year
  Sex: Female

DRUGS (11)
  1. DIPIPERON [Suspect]
     Indication: PRODUCT USED FOR UNKNOWN INDICATION
     Route: 048
     Dates: start: 20140317, end: 20140403
  2. RISPERIDONE [Interacting]
     Indication: PRODUCT USED FOR UNKNOWN INDICATION
     Route: 048
     Dates: start: 2014, end: 20140403
  3. LITHIUM CARBONATE [Interacting]
     Indication: PRODUCT USED FOR UNKNOWN INDICATION
     Route: 048
     Dates: start: 2014
  4. LORAZEPAM [Concomitant]
     Route: 048
     Dates: start: 2014
  5. LORAZEPAM [Concomitant]
     Route: 048
     Dates: start: 2014
  6. METFORMINE [Concomitant]
     Route: 048
     Dates: start: 2014
  7. TEMAZEPAM [Concomitant]
     Route: 048
     Dates: start: 2014
  8. EUTHYROX [Concomitant]
     Route: 048
     Dates: start: 2014
  9. DICLOFENACKALIUM [Concomitant]
     Route: 048
     Dates: start: 2014, end: 20140403
  10. SIMVASTATINE [Concomitant]
     Route: 048
     Dates: start: 2014, end: 20140403
  11. PARACETAMOL [Concomitant]
     Route: 048
     Dates: start: 2014, end: 20140403

REACTIONS (2)
  - Neuroleptic malignant syndrome [Recovering/Resolving]
  - Drug interaction [Recovering/Resolving]
